FAERS Safety Report 6399665-7 (Version None)
Quarter: 2009Q4

REPORT INFORMATION
  Report Type: 
  Country: None (occurrence: None)
  Receive Date: 20091014
  Receipt Date: 20091005
  Transmission Date: 20100525
  Serious: No
  Sender: FDA-Public Use
  Company Number: PE-ROCHE-660379

PATIENT
  Sex: Female
  Weight: 52 kg

DRUGS (1)
  1. ROACCUTAN [Suspect]
     Indication: ACNE
     Dosage: FREQUENCY IS REPORTED AS QD
     Route: 048
     Dates: start: 20090830, end: 20090913

REACTIONS (2)
  - NO ADVERSE EVENT [None]
  - PREGNANCY [None]
